FAERS Safety Report 20099021 (Version 1)
Quarter: 2021Q4

REPORT INFORMATION
  Report Type: Spontaneous
  Country: US (occurrence: None)
  Receive Date: 20211121
  Receipt Date: 20211121
  Transmission Date: 20220304
  Serious: No
  Sender: FDA-Public Use
  Company Number: None

PATIENT

DRUGS (2)
  1. VITAMIN K1 [Suspect]
     Active Substance: PHYTONADIONE
     Route: 058
  2. VITAMIN K1 [Suspect]
     Active Substance: PHYTONADIONE
     Dosage: OTHER STRENGTH : 1 MG/0.5 ML ;?
     Route: 058

REACTIONS (1)
  - Product packaging confusion [None]
